FAERS Safety Report 13050939 (Version 1)
Quarter: 2016Q4

REPORT INFORMATION
  Report Type: Spontaneous
  Country: US (occurrence: US)
  Receive Date: 20161221
  Receipt Date: 20161221
  Transmission Date: 20170207
  Serious: Yes (Other)
  Sender: FDA-Public Use
  Company Number: US-NOVOPROD-514841

PATIENT
  Age: 58 Year
  Sex: Female
  Weight: 58.96 kg

DRUGS (1)
  1. LEVEMIR [Suspect]
     Active Substance: INSULIN DETEMIR
     Indication: TYPE 1 DIABETES MELLITUS
     Dosage: 2 UNITS AT 3 AM, 2 ? UNITS AT 9AM
     Route: 058
     Dates: start: 20160501

REACTIONS (5)
  - Blood glucose fluctuation [Recovered/Resolved]
  - Blood glucose fluctuation [Not Recovered/Not Resolved]
  - Product quality issue [Recovered/Resolved]
  - Blood glucose increased [Not Recovered/Not Resolved]
  - Drug effect incomplete [Not Recovered/Not Resolved]

NARRATIVE: CASE EVENT DATE: 2016
